FAERS Safety Report 8458111-X (Version None)
Quarter: 2012Q2

REPORT INFORMATION
  Report Type: 
  Country: None (occurrence: None)
  Receive Date: 20120615
  Receipt Date: 20120607
  Transmission Date: 20120825
  Serious: Yes (Hospitalization)
  Sender: FDA-Public Use
  Company Number: 135227

PATIENT
  Age: 60 Year
  Sex: Male

DRUGS (1)
  1. CISPLATIN [Suspect]
     Indication: METASTATIC GASTRIC CANCER

REACTIONS (1)
  - AORTIC ANEURYSM [None]
